FAERS Safety Report 5114020-5 (Version None)
Quarter: 2006Q3

REPORT INFORMATION
  Report Type: 
  Country: None (occurrence: None)
  Receive Date: 20060921
  Receipt Date: 20060908
  Transmission Date: 20061208
  Serious: Yes (Death, Hospitalization)
  Sender: FDA-Public Use
  Company Number: 227661

PATIENT
  Age: 46 Year
  Sex: Female

DRUGS (20)
  1. RITUXAN [Suspect]
     Indication: RHEUMATOID ARTHRITIS
     Dosage: 1000 MG, DAYS 0 + 15, INTRAVENOUS
     Route: 042
     Dates: start: 20060614
  2. GOLD TREATMENT (GOLD NOS) [Concomitant]
  3. METHOTREXATE [Concomitant]
  4. ANTIMALARIAL AGENT NOS [Concomitant]
  5. NSAIDS (NON-STEROIDAL ANTI-INFLAMMATORY DRUG NOS) [Concomitant]
  6. REMICADE [Concomitant]
  7. RIDAURA [Concomitant]
  8. KLONOPIN [Concomitant]
  9. LORCET PLUS (ACETAMINOPHEN, HYDROCODONE BITARTRATE) [Concomitant]
  10. FOLIC ACID [Concomitant]
  11. ZETIA [Concomitant]
  12. COUMADIN [Concomitant]
  13. PROTONIX [Concomitant]
  14. ALTACE [Concomitant]
  15. PREDNISONE [Concomitant]
  16. LASIX [Concomitant]
  17. GEMFIBROZIL [Concomitant]
  18. POTASSIUM CHLORIDE [Concomitant]
  19. ASPIRIN [Concomitant]
  20. ABATACEPT [Concomitant]

REACTIONS (10)
  - ACUTE RESPIRATORY DISTRESS SYNDROME [None]
  - CEREBROVASCULAR ACCIDENT [None]
  - CONFUSIONAL STATE [None]
  - DIZZINESS [None]
  - HYPOTENSION [None]
  - PNEUMONIA [None]
  - RESPIRATORY FAILURE [None]
  - SEPSIS [None]
  - SEPTIC SHOCK [None]
  - WHITE BLOOD CELL COUNT DECREASED [None]
